FAERS Safety Report 7383622-8 (Version None)
Quarter: 2011Q1

REPORT INFORMATION
  Report Type: 
  Country: None (occurrence: None)
  Receive Date: 20110330
  Receipt Date: 20110322
  Transmission Date: 20110831
  Serious: Yes (Hospitalization, Other)
  Sender: FDA-Public Use
  Company Number: US-ROCHE-544713

PATIENT
  Sex: Male
  Weight: 77.1 kg

DRUGS (1)
  1. ACCUTANE [Suspect]
     Route: 065
     Dates: start: 20030930, end: 20031217

REACTIONS (14)
  - OSTEOARTHRITIS [None]
  - ANAL FISSURE [None]
  - RHEUMATOID ARTHRITIS [None]
  - DEEP VEIN THROMBOSIS [None]
  - ARTHROPATHY [None]
  - NEUROPATHY PERIPHERAL [None]
  - COLITIS ULCERATIVE [None]
  - DEPRESSION [None]
  - ANXIETY [None]
  - IRRITABLE BOWEL SYNDROME [None]
  - THROMBOPHLEBITIS [None]
  - INFLAMMATORY BOWEL DISEASE [None]
  - ILEITIS [None]
  - OSTEOPENIA [None]
